FAERS Safety Report 6178429-3 (Version None)
Quarter: 2009Q2

REPORT INFORMATION
  Report Type: 
  Country: None (occurrence: None)
  Receive Date: 20090504
  Receipt Date: 20090501
  Transmission Date: 20091009
  Serious: No
  Sender: FDA-Public Use
  Company Number: US-B.I. PHARMACEUTICALS,INC./RIDGEFIELD-2009-BP-05508BP

PATIENT
  Sex: Female

DRUGS (5)
  1. AGGRENOX [Suspect]
     Indication: TRANSIENT ISCHAEMIC ATTACK
     Route: 048
     Dates: start: 20090427
  2. LIPITOR [Concomitant]
     Indication: BLOOD CHOLESTEROL INCREASED
  3. LISINOPRIL [Concomitant]
     Indication: HYPERTENSION
  4. PREMARIN [Concomitant]
     Indication: HORMONE REPLACEMENT THERAPY
  5. PROMETRIUM [Concomitant]
     Indication: HORMONE REPLACEMENT THERAPY

REACTIONS (4)
  - ABDOMINAL PAIN UPPER [None]
  - BACK PAIN [None]
  - DIARRHOEA [None]
  - HEADACHE [None]
